FAERS Safety Report 5780090-4 (Version None)
Quarter: 2008Q2

REPORT INFORMATION
  Report Type: 
  Country: None (occurrence: None)
  Receive Date: 20080620
  Receipt Date: 20080612
  Transmission Date: 20081010
  Serious: Yes (Hospitalization)
  Sender: FDA-Public Use
  Company Number: US-NOVOPROD-276320

PATIENT
  Age: 70 Year
  Sex: Female

DRUGS (1)
  1. VAGIFEM [Suspect]
     Indication: MENOPAUSAL SYMPTOMS
     Dosage: UNK
     Route: 067
     Dates: start: 20080401

REACTIONS (3)
  - FATIGUE [None]
  - PAIN IN EXTREMITY [None]
  - PULMONARY EMBOLISM [None]
